FAERS Safety Report 20780141 (Version 1)
Quarter: 2022Q2

REPORT INFORMATION
  Report Type: Spontaneous
  Country: CA (occurrence: CA)
  Receive Date: 20220503
  Receipt Date: 20220503
  Transmission Date: 20220721
  Serious: Yes (Other)
  Sender: FDA-Public Use
  Company Number: CA-JNJFOC-20220458378

PATIENT
  Age: 31 Year
  Sex: Male
  Weight: 84 kg

DRUGS (2)
  1. REMICADE [Suspect]
     Active Substance: INFLIXIMAB
     Indication: Crohn^s disease
     Route: 042
  2. CEPHALEXIN [Concomitant]
     Active Substance: CEPHALEXIN
     Indication: Subcutaneous abscess

REACTIONS (2)
  - Crohn^s disease [Not Recovered/Not Resolved]
  - Staphylococcal skin infection [Not Recovered/Not Resolved]
